FAERS Safety Report 7555202-2 (Version None)
Quarter: 2011Q2

REPORT INFORMATION
  Report Type: 
  Country: None (occurrence: None)
  Receive Date: 20110617
  Receipt Date: 20110607
  Transmission Date: 20111010
  Serious: Yes (Hospitalization)
  Sender: FDA-Public Use
  Company Number: PHHY2011US49936

PATIENT
  Sex: Male

DRUGS (13)
  1. TOBI [Suspect]
     Indication: CYSTIC FIBROSIS
     Dosage: 300 MG, Q 28 DAYS
     Dates: start: 19990101
  2. AZITHROMYCIN [Concomitant]
  3. PULMOZYME [Concomitant]
  4. URSODIOL [Concomitant]
     Indication: GASTROOESOPHAGEAL REFLUX DISEASE
  5. CHOLESTIN [Concomitant]
  6. FLOVENT [Concomitant]
  7. SINGULAIR [Concomitant]
     Indication: HYPERSENSITIVITY
  8. FERROUS SULFATE TAB [Concomitant]
  9. ALBUTEROL SULFATE AUTOHALER [Concomitant]
  10. CAYSTON [Concomitant]
  11. VITAMIN TAB [Concomitant]
  12. FLONASE [Concomitant]
  13. ZENPEP [Concomitant]

REACTIONS (4)
  - DYSPNOEA [None]
  - MALAISE [None]
  - PSEUDOMONAS INFECTION [None]
  - PULMONARY CONGESTION [None]
